FAERS Safety Report 13564700 (Version 1)
Quarter: 2017Q2

REPORT INFORMATION
  Report Type: Report from Study
  Country: US (occurrence: US)
  Receive Date: 20170519
  Receipt Date: 20170519
  Transmission Date: 20170830
  Serious: Yes (Death, Hospitalization, Other)
  Sender: FDA-Public Use
  Company Number: US-BAYER-2015-408296

PATIENT
  Age: 82 Year
  Sex: Male
  Weight: 79.82 kg

DRUGS (9)
  1. ADEMPAS [Suspect]
     Active Substance: RIOCIGUAT
     Indication: PULMONARY ARTERIAL HYPERTENSION
     Dosage: 2 MG, TID
     Route: 048
  2. ADEMPAS [Suspect]
     Active Substance: RIOCIGUAT
     Indication: PULMONARY ARTERIAL HYPERTENSION
     Dosage: 0.5 MG, TID
     Route: 048
  3. ADEMPAS [Suspect]
     Active Substance: RIOCIGUAT
     Indication: PULMONARY ARTERIAL HYPERTENSION
     Dosage: 1 MG, TID
     Route: 048
  4. WARFARIN [Concomitant]
     Active Substance: WARFARIN
  5. OPSUMIT [Concomitant]
     Active Substance: MACITENTAN
  6. ADEMPAS [Suspect]
     Active Substance: RIOCIGUAT
     Indication: PULMONARY ARTERIAL HYPERTENSION
     Dosage: 1.5 MG, TID
     Route: 048
  7. ADEMPAS [Suspect]
     Active Substance: RIOCIGUAT
     Indication: PULMONARY ARTERIAL HYPERTENSION
     Dosage: 2.5 MG, TID
     Route: 048
  8. COUMADIN [Concomitant]
     Active Substance: WARFARIN SODIUM
     Dosage: UNK
  9. ADEMPAS [Suspect]
     Active Substance: RIOCIGUAT
     Indication: PULMONARY ARTERIAL HYPERTENSION
     Dosage: UNK
     Dates: start: 20150810

REACTIONS (15)
  - Dizziness [Unknown]
  - Cough [Not Recovered/Not Resolved]
  - Pyrexia [Recovered/Resolved]
  - Nasal congestion [Unknown]
  - Penile haemorrhage [None]
  - Pulmonary hypertension [Unknown]
  - Dyspepsia [Unknown]
  - Haemorrhage [Unknown]
  - Body temperature increased [Unknown]
  - Decreased appetite [Unknown]
  - Asthenia [Unknown]
  - Malaise [Unknown]
  - Parkinson^s disease [Unknown]
  - Death [Fatal]
  - Therapy cessation [None]

NARRATIVE: CASE EVENT DATE: 201508
